FAERS Safety Report 7116099-8 (Version None)
Quarter: 2010Q4

REPORT INFORMATION
  Report Type: 
  Country: None (occurrence: None)
  Receive Date: 20101122
  Receipt Date: 20101109
  Transmission Date: 20110411
  Serious: Yes (Other)
  Sender: FDA-Public Use
  Company Number: US-ROCHE-741679

PATIENT
  Age: 43 Year
  Sex: Male

DRUGS (1)
  1. AVASTIN [Suspect]
     Route: 065

REACTIONS (1)
  - PSEUDOENDOPHTHALMITIS [None]
